FAERS Safety Report 9316636 (Version 1)
Quarter: 2013Q2

REPORT INFORMATION
  Report Type: Spontaneous
  Country: US (occurrence: None)
  Receive Date: 20130524
  Receipt Date: 20130524
  Transmission Date: 20140414
  Serious: Yes (Other)
  Sender: FDA-Public Use
  Company Number: AUR-APL-2013-04099

PATIENT
  Age: 74 Year
  Sex: Male

DRUGS (3)
  1. VALPROATE [Suspect]
     Indication: BIPOLAR DISORDER
     Dosage: (1500MG, 1D)
  2. CARBIDOPA W.LEVODOPA (SINEMET) [Concomitant]
  3. ENTACAPONE (ENTACAPONE) [Concomitant]

REACTIONS (6)
  - Parkinsonism [None]
  - Akinesia [None]
  - Bradykinesia [None]
  - Dysphonia [None]
  - Balance disorder [None]
  - Gait disturbance [None]
